FAERS Safety Report 6048716-8 (Version None)
Quarter: 2009Q1

REPORT INFORMATION
  Report Type: 
  Country: None (occurrence: None)
  Receive Date: 20090123
  Receipt Date: 20090120
  Transmission Date: 20090719
  Serious: Yes (Hospitalization)
  Sender: FDA-Public Use
  Company Number: JP-BAYER-200813169BYL

PATIENT
  Age: 59 Year
  Sex: Male
  Weight: 51 kg

DRUGS (3)
  1. NEXAVAR [Suspect]
     Indication: RENAL CELL CARCINOMA STAGE IV
     Dosage: UNIT DOSE: 200 MG
     Route: 048
     Dates: start: 20080630
  2. NEXAVAR [Suspect]
     Dosage: UNIT DOSE: 200 MG
     Route: 048
     Dates: start: 20080714, end: 20080725
  3. NEXAVAR [Suspect]
     Route: 048
     Dates: start: 20081126, end: 20081201

REACTIONS (3)
  - DECREASED APPETITE [None]
  - MALAISE [None]
  - NAUSEA [None]
